FAERS Safety Report 8540344-5 (Version None)
Quarter: 2012Q3

REPORT INFORMATION
  Report Type: 
  Country: None (occurrence: None)
  Receive Date: 20120726
  Receipt Date: 20120716
  Transmission Date: 20120928
  Serious: Yes (Hospitalization, Disabling, Other)
  Sender: FDA-Public Use
  Company Number: US-009507513-1008USA03507

PATIENT

DRUGS (5)
  1. FOSAMAX [Suspect]
     Indication: PROPHYLAXIS
     Route: 048
     Dates: start: 19960101
  2. FOSAMAX [Suspect]
     Dosage: 10 MG, UNK
     Route: 048
     Dates: start: 20021014, end: 20030318
  3. FOSAMAX [Suspect]
     Dosage: 40 MG, UNK
     Route: 048
     Dates: end: 20070101
  4. FOSAMAX [Suspect]
     Indication: OSTEOPENIA
     Dosage: 40 MG, QD
     Route: 048
     Dates: start: 20001014
  5. FOSAMAX [Suspect]
     Dosage: 40 MG, QW
     Route: 048
     Dates: end: 20060905

REACTIONS (46)
  - TOOTH INFECTION [None]
  - ORAL DISORDER [None]
  - HAEMANGIOMA [None]
  - PERIARTHRITIS [None]
  - ARTHROPATHY [None]
  - INAPPROPRIATE SCHEDULE OF DRUG ADMINISTRATION [None]
  - HYPOTHYROIDISM [None]
  - DIVERTICULUM [None]
  - NECK PAIN [None]
  - GINGIVAL BLEEDING [None]
  - OBESITY [None]
  - LICHEN SCLEROSUS [None]
  - ABSCESS ORAL [None]
  - IRON DEFICIENCY ANAEMIA [None]
  - MUSCULOSKELETAL CHEST PAIN [None]
  - GINGIVITIS [None]
  - COLONIC POLYP [None]
  - PERINEURIAL CYST [None]
  - ORAL INFECTION [None]
  - BACK INJURY [None]
  - DEVICE FAILURE [None]
  - IMPAIRED HEALING [None]
  - BREAST ENLARGEMENT [None]
  - METABOLIC SYNDROME [None]
  - OSTEONECROSIS OF JAW [None]
  - DENTAL CARIES [None]
  - OSTEOARTHRITIS [None]
  - ABDOMINAL PAIN LOWER [None]
  - LUMBAR RADICULOPATHY [None]
  - TOOTH DISORDER [None]
  - HYPERLIPIDAEMIA [None]
  - RADICULOPATHY [None]
  - DYSPEPSIA [None]
  - FALL [None]
  - GINGIVAL DISORDER [None]
  - PERIODONTITIS [None]
  - BLOOD CHOLESTEROL INCREASED [None]
  - HYPERTENSION [None]
  - PLANTAR FASCIITIS [None]
  - FATIGUE [None]
  - SLEEP DISORDER [None]
  - MUSCLE SPASMS [None]
  - HAEMORRHOIDS [None]
  - GLUCOSE TOLERANCE IMPAIRED [None]
  - SPINAL DISORDER [None]
  - OCCULT BLOOD [None]
